FAERS Safety Report 4426618-8 (Version None)
Quarter: 2004Q3

REPORT INFORMATION
  Report Type: 
  Country: None (occurrence: None)
  Receive Date: 20040816
  Receipt Date: 20040804
  Transmission Date: 20050211
  Serious: Yes (Hospitalization)
  Sender: FDA-Public Use
  Company Number: CA-AMGEN-US085258

PATIENT
  Age: 70 Year
  Sex: Female

DRUGS (3)
  1. ARANESP [Suspect]
     Indication: DIALYSIS
     Dates: start: 20040101
  2. EPREX [Suspect]
  3. INSULIN [Concomitant]

REACTIONS (5)
  - DIALYSIS [None]
  - HAEMOGLOBIN DECREASED [None]
  - HOSPITALISATION [None]
  - RED BLOOD CELL COUNT DECREASED [None]
  - THERAPEUTIC RESPONSE DECREASED [None]
